FAERS Safety Report 7802298-6 (Version None)
Quarter: 2011Q4

REPORT INFORMATION
  Report Type: 
  Country: None (occurrence: None)
  Receive Date: 20111007
  Receipt Date: 20110929
  Transmission Date: 20120403
  Serious: Yes (Life-Threatening, Hospitalization, Disabling)
  Sender: FDA-Public Use
  Company Number: AU-MPIJNJ-2011-02955

PATIENT

DRUGS (11)
  1. METFORMIN HCL [Concomitant]
     Indication: DIABETES MELLITUS
     Dosage: 500 MG, UNK
     Route: 048
  2. VELCADE [Suspect]
     Dosage: UNK MG, UNK
     Route: 042
     Dates: start: 20110501
  3. INSULIN LISPRO [Concomitant]
     Indication: DIABETES MELLITUS
     Route: 065
  4. VELCADE [Suspect]
     Dosage: 3 MG, UNK
     Route: 065
     Dates: start: 20110610, end: 20110620
  5. BACTRIM [Concomitant]
     Route: 065
  6. VENTOLIN [Concomitant]
     Route: 065
  7. PANADOL OSTEO [Concomitant]
     Route: 065
  8. WARFARIN SODIUM [Concomitant]
     Indication: PULMONARY EMBOLISM
     Dosage: 6 MG, UNK
     Route: 065
  9. VALTREX [Concomitant]
     Route: 065
  10. VELCADE [Suspect]
     Indication: MULTIPLE MYELOMA
     Dosage: UNK
     Route: 042
     Dates: start: 20100301, end: 20100801
  11. SERETIDE                           /01420901/ [Concomitant]
     Route: 065

REACTIONS (4)
  - DISEASE PROGRESSION [None]
  - PULMONARY HYPERTENSION [None]
  - RESPIRATORY DISTRESS [None]
  - PULMONARY FIBROSIS [None]
